FAERS Safety Report 7292967-1 (Version None)
Quarter: 2011Q1

REPORT INFORMATION
  Report Type: 
  Country: None (occurrence: None)
  Receive Date: 20110215
  Receipt Date: 20110209
  Transmission Date: 20110831
  Serious: Yes (Life-Threatening, Hospitalization)
  Sender: FDA-Public Use
  Company Number: DE-SANOFI-AVENTIS-2011SA003960

PATIENT
  Age: 56 Year
  Sex: Male
  Weight: 115 kg

DRUGS (8)
  1. MULTAQ [Suspect]
     Indication: ATRIAL FIBRILLATION
     Route: 048
     Dates: start: 20100625
  2. FURO [Concomitant]
     Route: 065
  3. ALDACTONE [Concomitant]
     Route: 065
  4. METOPROLOL SUCCINATE [Concomitant]
     Route: 065
  5. LEVOTHYROXINE SODIUM [Concomitant]
     Route: 065
  6. MARCUMAR [Concomitant]
     Dosage: DOSAGE: ACCORDING TO INR
     Route: 065
  7. LOSARTAN POTASSIUM [Concomitant]
     Route: 065
  8. BLOPRESS [Concomitant]
     Route: 065

REACTIONS (4)
  - BLOOD UREA INCREASED [None]
  - GENERAL PHYSICAL HEALTH DETERIORATION [None]
  - RENAL FAILURE ACUTE [None]
  - BLOOD CREATININE INCREASED [None]
